FAERS Safety Report 6612292-9 (Version None)
Quarter: 2010Q1

REPORT INFORMATION
  Report Type: 
  Country: None (occurrence: None)
  Receive Date: 20100303
  Receipt Date: 20100224
  Transmission Date: 20100710
  Serious: Yes (Other)
  Sender: FDA-Public Use
  Company Number: SE-JNJFOC-20100209065

PATIENT
  Age: 17 Year
  Sex: Female

DRUGS (4)
  1. REMICADE [Suspect]
     Indication: CROHN'S DISEASE
     Route: 042
  2. REMICADE [Suspect]
     Dosage: LATE AUTUMN 2009 FREQUENCY CHANGED TO EVERY 6-7 WEEKS
     Route: 042
  3. CIPROFLOXACIN [Concomitant]
  4. METOJECT [Concomitant]

REACTIONS (3)
  - DRUG EFFECT DECREASED [None]
  - PSORIASIS [None]
  - PUSTULAR PSORIASIS [None]
